FAERS Safety Report 5132783-X (Version None)
Quarter: 2006Q4

REPORT INFORMATION
  Report Type: 
  Country: None (occurrence: None)
  Receive Date: 20061017
  Receipt Date: 20061002
  Transmission Date: 20070319
  Serious: Yes (Hospitalization, Other)
  Sender: FDA-Public Use
  Company Number: 223753

PATIENT
  Age: 65 Year
  Sex: Female

DRUGS (8)
  1. MABTHERA                        (RITUXIMAB) [Suspect]
     Indication: RHEUMATOID ARTHRITIS
     Dosage: 1 G, INTRAVENOUS
     Route: 042
     Dates: start: 20060320
  2. ENBREL [Concomitant]
  3. HUMIRA [Concomitant]
  4. METHOTREXATE [Concomitant]
  5. PREVISCAN (FLUINDIONE) [Concomitant]
  6. PERFALGAN (ACETAMINOPHEN) [Concomitant]
  7. POLARAMINE [Concomitant]
  8. HYDROCORTISONE [Concomitant]

REACTIONS (12)
  - ARTHRITIS BACTERIAL [None]
  - BRONCHIAL OBSTRUCTION [None]
  - BRONCHOPNEUMONIA [None]
  - CHOLESTASIS [None]
  - DILATATION VENTRICULAR [None]
  - HYPOCOAGULABLE STATE [None]
  - HYPOPROTHROMBINAEMIA [None]
  - INFECTION [None]
  - PO2 DECREASED [None]
  - PULMONARY EMBOLISM [None]
  - VENTRICULAR HYPOKINESIA [None]
  - WHITE BLOOD CELL COUNT INCREASED [None]
